FAERS Safety Report 6071508-0 (Version None)
Quarter: 2009Q1

REPORT INFORMATION
  Report Type: 
  Country: None (occurrence: None)
  Receive Date: 20090206
  Receipt Date: 20090206
  Transmission Date: 20090719
  Serious: Yes (Hospitalization)
  Sender: FDA-Public Use
  Company Number: None

PATIENT
  Age: 68 Year
  Sex: Male

DRUGS (1)
  1. RISPERIDONE [Suspect]
     Indication: PSYCHOTIC DISORDER
     Dosage: 3 MG TABLET TWICE A DAY BY MOUTH
     Route: 048
     Dates: start: 20081117, end: 20081203

REACTIONS (2)
  - ERECTION INCREASED [None]
  - GROIN PAIN [None]
